FAERS Safety Report 6135769-1 (Version None)
Quarter: 2009Q1

REPORT INFORMATION
  Report Type: 
  Country: None (occurrence: None)
  Receive Date: 20090327
  Receipt Date: 20090326
  Transmission Date: 20090719
  Serious: Yes (Death, Hospitalization)
  Sender: FDA-Public Use
  Company Number: PHHY2008JP21615

PATIENT
  Sex: Male

DRUGS (3)
  1. ZOMETA [Suspect]
     Indication: METASTASES TO BONE
     Dosage: 4 MG (INTERVAL NOT PROVIDED)
     Route: 042
     Dates: start: 20061124, end: 20070903
  2. ADRENOCORTICOTROPHIC HORMONE [Concomitant]
     Route: 048
  3. WARFARIN SODIUM [Concomitant]

REACTIONS (6)
  - ABSCESS DRAINAGE [None]
  - BONE DISORDER [None]
  - CARDIAC FAILURE [None]
  - MITRAL VALVE INCOMPETENCE [None]
  - OSTEONECROSIS [None]
  - PAIN IN JAW [None]
